FAERS Safety Report 15631973 (Version 1)
Quarter: 2018Q4

REPORT INFORMATION
  Report Type: Spontaneous
  Country: MX (occurrence: MX)
  Receive Date: 20181119
  Receipt Date: 20181119
  Transmission Date: 20190205
  Serious: Yes (Hospitalization, Other)
  Sender: FDA-Public Use
  Company Number: MX-GLAXOSMITHKLINE-MX2018GSK205176

PATIENT
  Age: 16 Year
  Sex: Female

DRUGS (2)
  1. VENLAFAXINE [Concomitant]
     Active Substance: VENLAFAXINE HYDROCHLORIDE
     Indication: BIPOLAR DISORDER
     Dosage: 75 MG EVERY 24 HRS
  2. LAMOTRIGINE. [Suspect]
     Active Substance: LAMOTRIGINE
     Indication: BIPOLAR DISORDER
     Dosage: 100 MG, QD
     Route: 065

REACTIONS (19)
  - Macule [Unknown]
  - Hepatosplenomegaly [Unknown]
  - Dyspnoea [Unknown]
  - Cheilitis [Unknown]
  - Skin burning sensation [Unknown]
  - Dry mouth [Unknown]
  - Face oedema [Unknown]
  - Erythema [Unknown]
  - Lymphadenopathy [Unknown]
  - Pyrexia [Unknown]
  - Drug reaction with eosinophilia and systemic symptoms [Unknown]
  - Eyelid oedema [Unknown]
  - Petechiae [Unknown]
  - Skin disorder prophylaxis [Unknown]
  - Rash [Unknown]
  - Discomfort [Unknown]
  - Eosinophilic pneumonia [Unknown]
  - Dermatosis [Unknown]
  - Papule [Unknown]
